FAERS Safety Report 7936007-7 (Version None)
Quarter: 2011Q4

REPORT INFORMATION
  Report Type: 
  Country: None (occurrence: None)
  Receive Date: 20111123
  Receipt Date: 20111111
  Transmission Date: 20120403
  Serious: Yes (Other)
  Sender: FDA-Public Use
  Company Number: IT-CELGENEUS-083-21880-11080669

PATIENT
  Sex: Male

DRUGS (7)
  1. REVLIMID [Suspect]
     Dosage: 10 MILLIGRAM
     Route: 048
     Dates: start: 20080708, end: 20081203
  2. REVLIMID [Suspect]
     Dosage: 10 MILLIGRAM
     Route: 048
     Dates: start: 20090115, end: 20110414
  3. REVLIMID [Suspect]
     Dosage: 5 MILLIGRAM
     Route: 048
     Dates: start: 20110415, end: 20110614
  4. ASPIRIN [Concomitant]
     Route: 065
     Dates: start: 20050818, end: 20110510
  5. OMEPRAZOLE [Concomitant]
     Dates: start: 20050818, end: 20110510
  6. REVLIMID [Suspect]
     Indication: MULTIPLE MYELOMA
     Dosage: 10 MILLIGRAM
     Route: 048
     Dates: start: 20050818, end: 20080624
  7. CIPROFLOXACIN [Concomitant]
     Route: 065
     Dates: start: 20050818, end: 20110510

REACTIONS (1)
  - PROSTATE CANCER [None]
